FAERS Safety Report 9109832 (Version 1)
Quarter: 2013Q1

REPORT INFORMATION
  Report Type: Spontaneous
  Country: ES (occurrence: ES)
  Receive Date: 20130222
  Receipt Date: 20130222
  Transmission Date: 20140127
  Serious: Yes (Other)
  Sender: FDA-Public Use
  Company Number: ES-ASTRAZENECA-2013SE10364

PATIENT
  Age: 66 Year
  Sex: Male

DRUGS (7)
  1. PROVISACOR [Suspect]
     Indication: HYPERCHOLESTEROLAEMIA
     Route: 048
     Dates: start: 20130114, end: 20130117
  2. ALLOPURINOL [Concomitant]
  3. HYDROCHLOROTHIAZIDE [Concomitant]
     Dosage: DAILY
     Route: 048
  4. SIMVASTATIN [Concomitant]
     Route: 048
  5. METFORMIN [Concomitant]
     Dosage: DAILY
     Route: 048
  6. VILDAGLIPTIN [Concomitant]
     Dosage: DAILY
     Route: 048
  7. AMARYL [Concomitant]
     Dosage: 30 TABLETS, 4 MG DAILY
     Route: 048

REACTIONS (2)
  - Erectile dysfunction [Recovered/Resolved]
  - Insomnia [Recovered/Resolved]
